FAERS Safety Report 4553839-6 (Version None)
Quarter: 2005Q1

REPORT INFORMATION
  Report Type: 
  Country: None (occurrence: None)
  Receive Date: 20050111
  Receipt Date: 20050111
  Transmission Date: 20050727
  Serious: Yes (Other)
  Sender: FDA-Public Use
  Company Number: None

PATIENT
  Age: 58 Year
  Sex: Female

DRUGS (1)
  1. OMNIPAQUE [Suspect]
     Dosage: INTRAVENOUS; 100 ML
     Route: 042
     Dates: start: 20041206, end: 20041206

REACTIONS (4)
  - CONTRAST MEDIA REACTION [None]
  - PRURITUS [None]
  - URTICARIA [None]
  - WHEEZING [None]
